FAERS Safety Report 7137190-6 (Version None)
Quarter: 2010Q4

REPORT INFORMATION
  Report Type: 
  Country: None (occurrence: None)
  Receive Date: 20101206
  Receipt Date: 20070813
  Transmission Date: 20110411
  Serious: Yes (Death, Hospitalization)
  Sender: FDA-Public Use
  Company Number: US-ACTELION-A-US2007-16927

PATIENT

DRUGS (10)
  1. ILOPROST INHALATION SOLUTION 5UG US [Suspect]
     Indication: PULMONARY ARTERIAL HYPERTENSION
     Dosage: 5 UG, 6-9 X DAY
     Route: 055
     Dates: start: 20070706, end: 20070711
  2. NOROXIN [Concomitant]
  3. FOSAMAX [Concomitant]
  4. NEXIUM [Concomitant]
  5. KLOR-CON [Concomitant]
  6. LASIX [Concomitant]
  7. LACTULOSE [Concomitant]
  8. PROPRANOLOL [Concomitant]
  9. SPIRONOLACTONE [Concomitant]
  10. MULTI-VITAMIN [Concomitant]

REACTIONS (7)
  - DEATH [None]
  - DEHYDRATION [None]
  - DIZZINESS [None]
  - DYSGEUSIA [None]
  - HEADACHE [None]
  - NAUSEA [None]
  - VOMITING [None]
